FAERS Safety Report 26160973 (Version 1)
Quarter: 2025Q4

REPORT INFORMATION
  Report Type: Spontaneous
  Country: US (occurrence: US)
  Receive Date: 20251216
  Receipt Date: 20251216
  Transmission Date: 20260117
  Serious: No
  Sender: ALVOGEN
  Company Number: US-ALVOGEN-2024095971

PATIENT
  Sex: Female

DRUGS (1)
  1. FENTANYL [Suspect]
     Active Substance: FENTANYL
     Indication: Product used for unknown indication
     Dosage: STRENGTH: 12 MCG/HR; EXP. DATE: APR-2027; GTIN: 00347781423476
     Route: 062

REACTIONS (2)
  - Device adhesion issue [Unknown]
  - Device malfunction [Unknown]
